FAERS Safety Report 4376930-6 (Version None)
Quarter: 2004Q2

REPORT INFORMATION
  Report Type: 
  Country: None (occurrence: None)
  Receive Date: 20040608
  Receipt Date: 20040518
  Transmission Date: 20050107
  Serious: Yes (Hospitalization)
  Sender: FDA-Public Use
  Company Number: DSA_24436_2004

PATIENT
  Age: 61 Year
  Sex: Male

DRUGS (1)
  1. LORAZEPAM [Suspect]
     Dosage: VAR ONCE PO
     Route: 048
     Dates: start: 20040513, end: 20040513

REACTIONS (4)
  - BOWEL SOUNDS ABNORMAL [None]
  - COLD SWEAT [None]
  - INTENTIONAL OVERDOSE [None]
  - SOMNOLENCE [None]
